FAERS Safety Report 5023534-8 (Version None)
Quarter: 2006Q2

REPORT INFORMATION
  Report Type: 
  Country: None (occurrence: None)
  Receive Date: 20060612
  Receipt Date: 20060607
  Transmission Date: 20061013
  Serious: Yes (Hospitalization)
  Sender: FDA-Public Use
  Company Number: PT-GLAXOSMITHKLINE-B0426984A

PATIENT
  Age: 8 Year
  Sex: Female

DRUGS (1)
  1. CLAVAMOX [Suspect]
     Route: 048
     Dates: start: 20041001, end: 20040101

REACTIONS (3)
  - EYELID OEDEMA [None]
  - FACE OEDEMA [None]
  - URTICARIA LOCALISED [None]
